FAERS Safety Report 7729400-9 (Version None)
Quarter: 2011Q3

REPORT INFORMATION
  Report Type: 
  Country: None (occurrence: None)
  Receive Date: 20110831
  Receipt Date: 20110831
  Transmission Date: 20111222
  Serious: Yes (Death, Hospitalization)
  Sender: FDA-Public Use
  Company Number: None

PATIENT
  Sex: Male
  Weight: 66.36 kg

DRUGS (3)
  1. ELOXATIN [Suspect]
     Dosage: 147 MG
  2. XELODA [Suspect]
     Dosage: 20000 MG
  3. TAXOTERE [Suspect]
     Dosage: 104 MG

REACTIONS (17)
  - DIZZINESS [None]
  - MUCOSAL INFLAMMATION [None]
  - INFLAMMATION [None]
  - ATRIAL FIBRILLATION [None]
  - RESPIRATORY FAILURE [None]
  - DIARRHOEA [None]
  - PSEUDOMEMBRANOUS COLITIS [None]
  - ORAL PAIN [None]
  - ABDOMINAL PAIN [None]
  - NEUTROPENIA [None]
  - DEHYDRATION [None]
  - NAUSEA [None]
  - ASTHENIA [None]
  - FATIGUE [None]
  - HYPOTENSION [None]
  - SEPSIS [None]
  - COLITIS ISCHAEMIC [None]
